FAERS Safety Report 24687190 (Version 1)
Quarter: 2024Q4

REPORT INFORMATION
  Report Type: Report from Study
  Country: US (occurrence: US)
  Receive Date: 20241202
  Receipt Date: 20241202
  Transmission Date: 20250114
  Serious: Yes (Hospitalization, Other)
  Sender: ABBVIE
  Company Number: US-ABBVIE-6024807

PATIENT
  Age: 59 Year
  Sex: Female

DRUGS (4)
  1. SKYRIZI [Suspect]
     Active Substance: RISANKIZUMAB-RZAA
     Indication: Psoriatic arthropathy
     Dosage: FORM STRENGTH: 150MG/ML, WEEK 0
     Route: 058
     Dates: start: 202310, end: 202310
  2. SKYRIZI [Suspect]
     Active Substance: RISANKIZUMAB-RZAA
     Dosage: FORM STRENGTH: 150MG/ML, WEEK 4
     Route: 058
     Dates: start: 202311, end: 202311
  3. SKYRIZI [Suspect]
     Active Substance: RISANKIZUMAB-RZAA
     Dosage: FORM STRENGTH: 150MG/ML?DRUG END DATE 2024
     Route: 058
     Dates: start: 2024
  4. SKYRIZI [Suspect]
     Active Substance: RISANKIZUMAB-RZAA
     Dosage: FORM STRENGTH: 150MG/ML
     Route: 058
     Dates: start: 2024

REACTIONS (15)
  - Shoulder operation [Unknown]
  - Psoriatic arthropathy [Unknown]
  - Haemorrhage [Unknown]
  - Arthralgia [Unknown]
  - Dyschezia [Unknown]
  - Feeding disorder [Unknown]
  - Loss of personal independence in daily activities [Unknown]
  - Butterfly rash [Unknown]
  - Skin ulcer [Unknown]
  - Nasopharyngitis [Unknown]
  - Vomiting [Unknown]
  - Diarrhoea [Unknown]
  - Chest pain [Unknown]
  - Haemoptysis [Unknown]
  - Respiratory tract congestion [Unknown]

NARRATIVE: CASE EVENT DATE: 20240101
